FAERS Safety Report 9440212 (Version 3)
Quarter: 2013Q3

REPORT INFORMATION
  Report Type: Report from Study
  Country: US (occurrence: US)
  Receive Date: 20130805
  Receipt Date: 20130924
  Transmission Date: 20140515
  Serious: Yes (Other)
  Sender: FDA-Public Use
  Company Number: PHEH2013US016425

PATIENT
  Sex: Female

DRUGS (6)
  1. GILENYA [Suspect]
     Indication: MULTIPLE SCLEROSIS
     Dosage: 0.5 MG, QD
     Route: 048
     Dates: start: 201002
  2. PROVIGIL//MODAFINIL [Concomitant]
     Indication: FATIGUE
     Route: 048
     Dates: start: 2006
  3. INDERAL [Concomitant]
     Indication: TREMOR
     Route: 048
     Dates: start: 2002
  4. OMEPRAZOLE [Concomitant]
     Indication: DYSPEPSIA
     Route: 048
     Dates: start: 20100421
  5. VALTREX [Concomitant]
     Indication: HERPES ZOSTER
     Route: 048
     Dates: start: 20120421
  6. GABAPENTIN [Concomitant]
     Indication: PAIN
     Route: 048
     Dates: start: 20120910

REACTIONS (1)
  - Cholelithiasis [Recovered/Resolved]
